FAERS Safety Report 5826653-9 (Version None)
Quarter: 2008Q3

REPORT INFORMATION
  Report Type: 
  Country: None (occurrence: None)
  Receive Date: 20080728
  Receipt Date: 20080728
  Transmission Date: 20090109
  Serious: Yes (Hospitalization)
  Sender: FDA-Public Use
  Company Number: None

PATIENT
  Age: 81 Year
  Sex: Female

DRUGS (9)
  1. ATORVASTATIN CALCIUM [Suspect]
     Indication: HYPERLIPIDAEMIA
     Dosage: 40MG DAILY PO
     Route: 048
  2. NIACIN [Suspect]
     Indication: HYPERLIPIDAEMIA
     Dosage: 1000MG DAILY PO
     Route: 048
  3. PREGABALIN [Concomitant]
  4. TRAMADOL HCL [Concomitant]
  5. CLOPIDOGREL [Concomitant]
  6. POTASSIUM CHLORIDE [Concomitant]
  7. ASPIRIN [Concomitant]
  8. FUROSEMIDE [Concomitant]
  9. BENICAR [Concomitant]

REACTIONS (2)
  - CEREBROVASCULAR ACCIDENT [None]
  - RHABDOMYOLYSIS [None]
